FAERS Safety Report 24811962 (Version 1)
Quarter: 2025Q1

REPORT INFORMATION
  Report Type: Spontaneous
  Country: US (occurrence: US)
  Receive Date: 20250106
  Receipt Date: 20250106
  Transmission Date: 20250409
  Serious: No
  Sender: BRAINTREE
  Company Number: US-BRAINTREE LABORATORIES, INC.-2024BTE00246

PATIENT
  Sex: Female
  Weight: 102.51 kg

DRUGS (3)
  1. SUTAB [Suspect]
     Active Substance: MAGNESIUM SULFATE\POTASSIUM CHLORIDE\SODIUM SULFATE
     Indication: Colonoscopy
  2. ATORVASTATIN [Concomitant]
     Active Substance: ATORVASTATIN
  3. PAROXETINE [Concomitant]
     Active Substance: PAROXETINE

REACTIONS (1)
  - Abdominal pain upper [Recovered/Resolved]
